FAERS Safety Report 8075437-2 (Version None)
Quarter: 2012Q1

REPORT INFORMATION
  Report Type: 
  Country: None (occurrence: None)
  Receive Date: 20120120
  Receipt Date: 20120109
  Transmission Date: 20120608
  Serious: Yes (Hospitalization)
  Sender: FDA-Public Use
  Company Number: 2012MA000648

PATIENT
  Age: 7 Year
  Sex: Male

DRUGS (1)
  1. DIAZEPAM [Suspect]
     Indication: CONVULSION
     Dosage: 0.6 MG/KG;RTL

REACTIONS (3)
  - DYSPNOEA [None]
  - APNOEA [None]
  - RESPIRATORY ACIDOSIS [None]
